FAERS Safety Report 8197314-9 (Version None)
Quarter: 2012Q1

REPORT INFORMATION
  Report Type: 
  Country: None (occurrence: None)
  Receive Date: 20120309
  Receipt Date: 20120305
  Transmission Date: 20120608
  Serious: Yes (Death, Hospitalization)
  Sender: FDA-Public Use
  Company Number: NL-GENZYME-CLOF-1002017

PATIENT
  Sex: Female
  Weight: 58.8 kg

DRUGS (92)
  1. METHOTREXATE [Suspect]
     Dosage: 25 MG, QD ON DAY 7, 14, 21
     Route: 048
     Dates: start: 20101111, end: 20101208
  2. METHOTREXATE [Suspect]
     Dosage: 20 MG, QD ON DAY 7, 14, 21
     Route: 048
     Dates: start: 20110331, end: 20110427
  3. METHOTREXATE [Suspect]
     Dosage: 20 MG, QD ON DAY 7, 14, 21
     Route: 048
     Dates: start: 20110428, end: 20110525
  4. METHOTREXATE [Suspect]
     Dosage: 20 MG, QD ON DAY 7, 14, 21
     Route: 048
     Dates: start: 20110818, end: 20110914
  5. MERCAPTOPURINE [Suspect]
     Dosage: 50 MG, QD, DAYS 0-27
     Route: 048
     Dates: start: 20110526, end: 20110622
  6. MERCAPTOPURINE [Suspect]
     Dosage: 50 MG, QD, DAYS 0-27
     Route: 048
     Dates: start: 20110818, end: 20110914
  7. DOXORUBICIN HCL [Suspect]
     Dosage: 62 MG, QD
     Route: 042
     Dates: start: 20100818, end: 20100818
  8. PREDNISONE [Suspect]
     Dosage: 55 MG, QD, DAYS 0-6
     Route: 048
     Dates: start: 20101209, end: 20110105
  9. PREDNISONE [Suspect]
     Dosage: 55 MG, QD, DAYS 0-6
     Route: 048
     Dates: start: 20110203, end: 20110302
  10. PREDNISONE [Suspect]
     Dosage: 55 MG, QD, DAYS 0-6
     Route: 048
     Dates: start: 20110303, end: 20110330
  11. PREDNISONE [Suspect]
     Dosage: 55 MG, QD, DAYS 0-6
     Route: 048
     Dates: start: 20110623, end: 20110720
  12. PREDNISONE [Suspect]
     Dosage: 55 MG, QD, DAYS 0-6
     Route: 048
     Dates: start: 20110721, end: 20110817
  13. VINCRISTINE [Suspect]
     Dosage: 2 MG, QD, DAY 1 OF EVERY MONTH
     Route: 042
     Dates: start: 20110526, end: 20110526
  14. VINCRISTINE [Suspect]
     Dosage: 2 MG, QD, DAY 1 OF EVERY MONTH
     Route: 042
     Dates: start: 20110915, end: 20110915
  15. CYTARABINE [Suspect]
     Indication: ACUTE LYMPHOCYTIC LEUKAEMIA
     Dosage: 310 MG, QD
     Route: 042
     Dates: start: 20100620, end: 20100620
  16. MERCAPTOPURINE [Suspect]
     Dosage: 50 MG, QD, DAYS 0-27
     Route: 048
     Dates: start: 20110915, end: 20111013
  17. DEXAMETHASONE [Suspect]
     Dosage: 4 MG, QD
     Route: 037
     Dates: start: 20110203, end: 20110203
  18. DOXORUBICIN HCL [Suspect]
     Dosage: 62 MG, QD
     Route: 042
     Dates: start: 20100902, end: 20100902
  19. PREDNISONE [Suspect]
     Dosage: 55 MG, QD, DAYS 0-6
     Route: 048
     Dates: start: 20110106, end: 20110202
  20. PREDNISONE [Suspect]
     Dosage: 55 MG, QD, DAYS 0-6
     Route: 048
     Dates: start: 20110331, end: 20110427
  21. VINCRISTINE [Suspect]
     Dosage: 1 MG, QD
     Route: 042
     Dates: start: 20100525, end: 20100525
  22. VINCRISTINE [Suspect]
     Dosage: 1 MG, QD
     Route: 042
     Dates: start: 20100826, end: 20100826
  23. VINCRISTINE [Suspect]
     Dosage: 2 MG, QD, DAY 1 OF EVERY MONTH
     Route: 042
     Dates: start: 20110331, end: 20110331
  24. CYTARABINE [Suspect]
     Dosage: 310 MG, QD
     Route: 042
     Dates: start: 20100627, end: 20100627
  25. CYTARABINE [Suspect]
     Dosage: 80 MG, QD
     Route: 037
     Dates: start: 20100902, end: 20100902
  26. METHOTREXATE [Suspect]
     Dosage: 775 MG, QD
     Route: 042
     Dates: start: 20100630, end: 20100630
  27. METHOTREXATE [Suspect]
     Dosage: 15 MG, QD ON DAY 7, 14, 21
     Route: 048
     Dates: start: 20110915, end: 20111013
  28. MERCAPTOPURINE [Suspect]
     Dosage: 50 MG, QD, DAYS 0-27
     Route: 048
     Dates: start: 20110721, end: 20110817
  29. DEXAMETHASONE [Suspect]
     Dosage: 4 MG, QD
     Route: 037
     Dates: start: 20100826, end: 20100826
  30. DEXAMETHASONE [Suspect]
     Dosage: 4 MG, QD
     Route: 037
     Dates: start: 20101209, end: 20101209
  31. PREDNISONE [Suspect]
     Dosage: 60 MG, QD
     Route: 048
     Dates: start: 20100819, end: 20100916
  32. PREDNISONE [Suspect]
     Dosage: 55 MG, QD, DAYS 0-6
     Route: 048
     Dates: start: 20110428, end: 20110525
  33. PREDNISONE [Suspect]
     Dosage: 55 MG, QD, DAYS 0-6
     Route: 048
     Dates: start: 20110818, end: 20110914
  34. VINCRISTINE [Suspect]
     Dosage: 1 MG, QD
     Route: 042
     Dates: start: 20100902, end: 20100902
  35. VINCRISTINE [Suspect]
     Dosage: 2 MG, QD, DAY 1 OF EVERY MONTH
     Route: 042
     Dates: start: 20101111, end: 20101111
  36. VINCRISTINE [Suspect]
     Dosage: 2 MG, QD, DAY 1 OF EVERY MONTH
     Route: 042
     Dates: start: 20110303, end: 20110303
  37. VINCRISTINE [Suspect]
     Dosage: 2 MG, QD, DAY 1 OF EVERY MONTH
     Route: 042
     Dates: start: 20110818, end: 20110818
  38. CYTARABINE [Suspect]
     Dosage: 80 MG, QD
     Route: 037
     Dates: start: 20100730, end: 20100730
  39. METHOTREXATE [Suspect]
     Dosage: 15 MG, QD ONCE A WEEK
     Route: 048
     Dates: start: 20111014, end: 20111120
  40. DEXAMETHASONE [Suspect]
     Dosage: 4 MG, QD
     Route: 037
     Dates: start: 20100723, end: 20100723
  41. DEXAMETHASONE [Suspect]
     Dosage: 4 MG, QD
     Route: 037
     Dates: start: 20100902, end: 20100902
  42. DOXORUBICIN HCL [Suspect]
     Indication: ACUTE LYMPHOCYTIC LEUKAEMIA
     Dosage: 66 MG, QD
     Route: 042
     Dates: start: 20100525, end: 20100525
  43. PREDNISONE [Suspect]
     Dosage: 35 MG, QD
     Route: 048
     Dates: start: 20100518, end: 20100614
  44. PREDNISONE [Suspect]
     Dosage: 55 MG, QD, DAYS 0-6
     Route: 048
     Dates: start: 20110915, end: 20111013
  45. VINCRISTINE [Suspect]
     Indication: ACUTE LYMPHOCYTIC LEUKAEMIA
     Dosage: 1 MG, QD
     Route: 042
     Dates: start: 20100518, end: 20100518
  46. METHOTREXATE [Suspect]
     Dosage: 17.5 MG, QD ON DAY 7, 14, 21
     Route: 048
     Dates: start: 20110303, end: 20110330
  47. MERCAPTOPURINE [Suspect]
     Dosage: 50 MG, QD, DAYS 0-27
     Route: 048
     Dates: start: 20110428, end: 20110525
  48. CYTARABINE [Suspect]
     Dosage: 3140 MG, QD
     Route: 065
     Dates: start: 20100923, end: 20100924
  49. CYTARABINE [Suspect]
     Dosage: 80 MG, QD
     Route: 037
     Dates: start: 20101209, end: 20101209
  50. CYTARABINE [Suspect]
     Dosage: 80 MG, QD
     Route: 037
     Dates: start: 20110203, end: 20110203
  51. EVOLTRA [Suspect]
     Dosage: 33 MG, QDX5
     Route: 042
     Dates: start: 20100720, end: 20100724
  52. METHOTREXATE [Suspect]
     Dosage: 775 MG, QD
     Route: 042
     Dates: start: 20100623, end: 20100623
  53. METHOTREXATE [Suspect]
     Dosage: 17.5 MG, QD ON DAY 7, 14, 21
     Route: 048
     Dates: start: 20110106, end: 20110202
  54. METHOTREXATE [Suspect]
     Dosage: 20 MG, QD ON DAY 7, 14, 21
     Route: 048
     Dates: start: 20110623, end: 20110720
  55. MERCAPTOPURINE [Suspect]
     Dosage: 50 MG, QD, DAYS 0-27
     Route: 048
     Dates: start: 20110303, end: 20110330
  56. MERCAPTOPURINE [Suspect]
     Dosage: 100 MG, QD
     Route: 048
     Dates: start: 20111121, end: 20120112
  57. ETOPOSIDE [Suspect]
     Dosage: 188 MG, QD
     Route: 042
     Dates: start: 20100627, end: 20100627
  58. DEXAMETHASONE [Suspect]
     Dosage: 4 MG, QD
     Route: 037
     Dates: start: 20101118, end: 20101118
  59. PEG-ASPARAGINASE [Suspect]
     Dosage: 1575 IU, QD
     Route: 042
     Dates: start: 20101010, end: 20101010
  60. PREDNISONE [Suspect]
     Indication: ACUTE LYMPHOCYTIC LEUKAEMIA
     Dosage: 50 MG, QD
     Route: 048
     Dates: start: 20100511, end: 20100517
  61. VINCRISTINE [Suspect]
     Dosage: 2 MG, QD, DAY 1 OF EVERY MONTH
     Route: 042
     Dates: start: 20101209, end: 20101209
  62. VINCRISTINE [Suspect]
     Dosage: 2 MG, QD, DAY 1 OF EVERY MONTH
     Route: 042
     Dates: start: 20110106, end: 20110106
  63. VINCRISTINE [Suspect]
     Dosage: 2 MG, QD, DAY 1 OF EVERY MONTH
     Route: 042
     Dates: start: 20110203, end: 20110203
  64. VINCRISTINE [Suspect]
     Dosage: 2 MG, QD, DAY 1 OF EVERY MONTH
     Route: 042
     Dates: start: 20110428, end: 20110428
  65. VINCRISTINE [Suspect]
     Dosage: 2 MG, QD, DAY 1 OF EVERY MONTH
     Route: 042
     Dates: start: 20110623, end: 20110623
  66. EVOLTRA [Suspect]
     Indication: ACUTE LYMPHOCYTIC LEUKAEMIA
     Dosage: 33 MG, QDX5
     Route: 042
     Dates: start: 20100511, end: 20100515
  67. METHOTREXATE [Suspect]
     Dosage: 17.5 MG, QD ON DAY 7, 14, 21
     Route: 048
     Dates: start: 20101209, end: 20110105
  68. METHOTREXATE [Suspect]
     Dosage: 20 MG, QD ON DAY 7, 14, 21
     Route: 048
     Dates: start: 20110526, end: 20110622
  69. MERCAPTOPURINE [Suspect]
     Indication: ACUTE LYMPHOCYTIC LEUKAEMIA
     Dosage: 100 MG, QD, DAYS 0-27
     Route: 048
     Dates: start: 20101111, end: 20101208
  70. MERCAPTOPURINE [Suspect]
     Dosage: 50 MG, QD, DAYS 0-27
     Route: 048
     Dates: start: 20110331, end: 20110427
  71. ETOPOSIDE [Suspect]
     Indication: ACUTE LYMPHOCYTIC LEUKAEMIA
     Dosage: 188 MG, QD
     Route: 042
     Dates: start: 20100620, end: 20100620
  72. PEG-ASPARAGINASE [Suspect]
     Indication: ACUTE LYMPHOCYTIC LEUKAEMIA
     Dosage: 1575 IU, QD
     Route: 042
     Dates: start: 20100925, end: 20100925
  73. DOXORUBICIN HCL [Suspect]
     Dosage: 66 MG, QD
     Route: 042
     Dates: start: 20100601, end: 20100601
  74. DOXORUBICIN HCL [Suspect]
     Dosage: 62 MG, QD
     Route: 042
     Dates: start: 20100826, end: 20100826
  75. VINCRISTINE [Suspect]
     Dosage: 1 MG, QD
     Route: 042
     Dates: start: 20100601, end: 20100601
  76. CYTARABINE [Suspect]
     Dosage: 80 MG, QD
     Route: 037
     Dates: start: 20100723, end: 20100723
  77. METHOTREXATE [Suspect]
     Indication: ACUTE LYMPHOCYTIC LEUKAEMIA
     Dosage: 15 MG, QD
     Route: 037
     Dates: start: 20100608, end: 20100608
  78. METHOTREXATE [Suspect]
     Dosage: 20 MG, QD ON DAY 7, 14, 21
     Route: 048
     Dates: start: 20110721, end: 20110817
  79. METHOTREXATE [Suspect]
     Dosage: 20 MG, QD ONCE A WEEK
     Route: 048
     Dates: start: 20111121, end: 20120112
  80. MERCAPTOPURINE [Suspect]
     Dosage: 75 MG, QD, DAYS 0-27
     Route: 048
     Dates: start: 20101209, end: 20110105
  81. MERCAPTOPURINE [Suspect]
     Dosage: 90 MG, QD, DAYS 0-27
     Route: 048
     Dates: start: 20110106, end: 20110202
  82. MERCAPTOPURINE [Suspect]
     Dosage: 50 MG, QD, DAYS 0-27
     Route: 048
     Dates: start: 20110203, end: 20110302
  83. MERCAPTOPURINE [Suspect]
     Dosage: 50 MG, QD, DAYS 0-27
     Route: 048
     Dates: start: 20110623, end: 20110720
  84. MERCAPTOPURINE [Suspect]
     Dosage: 100 MG, QD
     Route: 048
     Dates: start: 20111014, end: 20111120
  85. DEXAMETHASONE [Suspect]
     Indication: ACUTE LYMPHOCYTIC LEUKAEMIA
     Dosage: 4 MG, QD
     Route: 037
     Dates: start: 20100608, end: 20100608
  86. DEXAMETHASONE [Suspect]
     Dosage: 4 MG, QD
     Route: 037
     Dates: start: 20100730, end: 20100730
  87. PREDNISONE [Suspect]
     Dosage: 55 MG, QD, DAYS 0-6
     Route: 048
     Dates: start: 20101111, end: 20101208
  88. PREDNISONE [Suspect]
     Dosage: 55 MG, QD, DAYS 0-6
     Route: 048
     Dates: start: 20110526, end: 20110622
  89. VINCRISTINE [Suspect]
     Dosage: 1 MG, QD
     Route: 042
     Dates: start: 20100819, end: 20100819
  90. VINCRISTINE [Suspect]
     Dosage: 2 MG, QD, DAY 1 OF EVERY MONTH
     Route: 042
     Dates: start: 20110721, end: 20110721
  91. CYTARABINE [Suspect]
     Dosage: 80 MG, QD
     Route: 037
     Dates: start: 20100826, end: 20100826
  92. CYTARABINE [Suspect]
     Dosage: 80 MG, QD
     Route: 037
     Dates: start: 20101118, end: 20101118

REACTIONS (2)
  - PYREXIA [None]
  - POST TRANSPLANT LYMPHOPROLIFERATIVE DISORDER [None]
